FAERS Safety Report 7395631-3 (Version None)
Quarter: 2011Q2

REPORT INFORMATION
  Report Type: 
  Country: None (occurrence: None)
  Receive Date: 20110405
  Receipt Date: 20080625
  Transmission Date: 20111010
  Serious: Yes (Other)
  Sender: FDA-Public Use
  Company Number: DE-GENENTECH-316249

PATIENT
  Age: 75 Year
  Sex: Male

DRUGS (3)
  1. LUCENTIS [Suspect]
     Dosage: UNK
     Route: 031
     Dates: end: 20091016
  2. LUCENTIS [Suspect]
     Indication: MACULAR DEGENERATION
     Dosage: UNK
     Route: 031
     Dates: start: 20070401
  3. LUCENTIS [Suspect]
     Dosage: UNK
     Route: 031

REACTIONS (1)
  - EYE HAEMORRHAGE [None]
